FAERS Safety Report 11043072 (Version 2)
Quarter: 2015Q2

REPORT INFORMATION
  Report Type: Spontaneous
  Country: FR (occurrence: FR)
  Receive Date: 20150417
  Receipt Date: 20150515
  Transmission Date: 20150821
  Serious: Yes (Life-Threatening, Hospitalization)
  Sender: FDA-Public Use
  Company Number: FR-ROCHE-1563898

PATIENT
  Age: 21 Year
  Sex: Female

DRUGS (8)
  1. RIVOTRIL [Suspect]
     Active Substance: CLONAZEPAM
     Route: 042
     Dates: start: 201502
  2. RIVOTRIL [Suspect]
     Active Substance: CLONAZEPAM
     Route: 042
     Dates: start: 20150331, end: 20150331
  3. LAMICTAL [Concomitant]
     Active Substance: LAMOTRIGINE
     Dosage: ONE DOSE IN THE EVENING
     Route: 065
  4. RIVOTRIL [Suspect]
     Active Substance: CLONAZEPAM
     Indication: GENERALISED TONIC-CLONIC SEIZURE
     Route: 042
     Dates: start: 201501
  5. URBANYL [Concomitant]
     Active Substance: CLOBAZAM
     Dosage: 10 MG 0.5 DOSES IN THE MORNING AND AT LUNCH TIME AND 1 DOSE IN THE EVENING
     Route: 065
     Dates: start: 201405
  6. PRODILANTIN [Suspect]
     Active Substance: FOSPHENYTOIN SODIUM
     Route: 042
     Dates: start: 201502
  7. PRODILANTIN [Suspect]
     Active Substance: FOSPHENYTOIN SODIUM
     Route: 042
     Dates: start: 20150331, end: 20150331
  8. PRODILANTIN [Suspect]
     Active Substance: FOSPHENYTOIN SODIUM
     Indication: GENERALISED TONIC-CLONIC SEIZURE
     Route: 042
     Dates: start: 201501

REACTIONS (3)
  - Bradycardia [Recovered/Resolved]
  - Hypotension [Recovered/Resolved]
  - Circulatory collapse [Recovered/Resolved]

NARRATIVE: CASE EVENT DATE: 20150331
